FAERS Safety Report 16973082 (Version 1)
Quarter: 2019Q4

REPORT INFORMATION
  Report Type: Spontaneous
  Country: FR (occurrence: FR)
  Receive Date: 20191030
  Receipt Date: 20191030
  Transmission Date: 20200122
  Serious: Yes (Hospitalization)
  Sender: FDA-Public Use
  Company Number: FR-BAXTER-2019BAX021156

PATIENT
  Age: 67 Year
  Sex: Female
  Weight: 54 kg

DRUGS (3)
  1. ENDOXAN 1000 MG, POUDRE POUR SOLUTIONINJECTABLE [Suspect]
     Active Substance: CYCLOPHOSPHAMIDE
     Indication: PRODUCT USED FOR UNKNOWN INDICATION
     Route: 042
     Dates: start: 20161230
  2. VELCADE [Suspect]
     Active Substance: BORTEZOMIB
     Indication: CARDIAC AMYLOIDOSIS
     Route: 042
     Dates: start: 20161230
  3. DEXAMETHASONE MYLAN [Suspect]
     Active Substance: DEXAMETHASONE
     Indication: PRODUCT USED FOR UNKNOWN INDICATION
     Dosage: 20 MG/5 ML, SOLUTION FOR INJECTION IN AMPOULE FORM
     Route: 042
     Dates: start: 20161230

REACTIONS (1)
  - Ischaemic stroke [Recovered/Resolved]

NARRATIVE: CASE EVENT DATE: 20170102
